FAERS Safety Report 6448279-9 (Version None)
Quarter: 2009Q4

REPORT INFORMATION
  Report Type: 
  Country: None (occurrence: None)
  Receive Date: 20091117
  Receipt Date: 20091103
  Transmission Date: 20100525
  Serious: Yes (Other)
  Sender: FDA-Public Use
  Company Number: ESP09000139

PATIENT
  Age: 75 Year
  Sex: Female

DRUGS (4)
  1. ACREL (RISEDRONATE SODIUM) TABLET, [Suspect]
     Dosage: 75 MG, 2 CD/MONTH, ORAL
     Route: 048
     Dates: start: 20090629, end: 20090830
  2. ENALAPRIL /00574902/ (ENALAPRIL MALEATE) [Concomitant]
  3. CALCIUM SANDOZ FORTE D (CALCIUM CARBONATE, CALCIUM GLUCEPTATE, COLECAL [Concomitant]
  4. EFFERALGAN /00020001/ (PARACETAMOL) [Concomitant]

REACTIONS (4)
  - FLUSHING [None]
  - GALACTORRHOEA [None]
  - GINGIVITIS [None]
  - PRURITUS [None]
